FAERS Safety Report 20319301 (Version 5)
Quarter: 2022Q4

REPORT INFORMATION
  Report Type: Spontaneous
  Country: US (occurrence: US)
  Receive Date: 20220110
  Receipt Date: 20221111
  Transmission Date: 20230112
  Serious: No
  Sender: FDA-Public Use
  Company Number: US-PFIZER INC-2020294869

PATIENT
  Age: 50 Year
  Sex: Female

DRUGS (1)
  1. XELJANZ XR [Suspect]
     Active Substance: TOFACITINIB CITRATE
     Indication: Psoriasis
     Dosage: 11 MG, DAILY
     Route: 048

REACTIONS (5)
  - Pain [Unknown]
  - Blood cholesterol increased [Unknown]
  - Thyroid disorder [Unknown]
  - Product dose omission issue [Unknown]
  - Off label use [Unknown]
